FAERS Safety Report 13091027 (Version 1)
Quarter: 2017Q1

REPORT INFORMATION
  Report Type: Spontaneous
  Country: US (occurrence: US)
  Receive Date: 20170106
  Receipt Date: 20170106
  Transmission Date: 20170428
  Serious: No
  Sender: FDA-Public Use
  Company Number: US-009507513-1612USA010379

PATIENT
  Age: 70 Year
  Sex: Female

DRUGS (1)
  1. ALENDRONATE SODIUM / CHOLCALCIFEROL TABLETS [Suspect]
     Active Substance: ALENDRONATE SODIUM\CHOLECALCIFEROL
     Dosage: UNK

REACTIONS (1)
  - Glomerular filtration rate decreased [Unknown]
